FAERS Safety Report 8456092-6 (Version None)
Quarter: 2012Q2

REPORT INFORMATION
  Report Type: 
  Country: None (occurrence: None)
  Receive Date: 20120621
  Receipt Date: 20120618
  Transmission Date: 20120825
  Serious: Yes (Death, Other)
  Sender: FDA-Public Use
  Company Number: PHHY2012CA032295

PATIENT
  Sex: Male

DRUGS (22)
  1. DIVALPROEX SODIUM [Concomitant]
     Dosage: 1 DF, BID
  2. HALOPERIDOL [Concomitant]
     Dosage: 0.5 MG, BID
  3. HALOPERIDOL [Concomitant]
     Indication: AGGRESSION
     Dosage: 1 MG, QD
  4. ACETAMINOPHEN [Concomitant]
     Dosage: 650 MG, UNK
  5. BENZTROPINE MESYLATE [Concomitant]
     Dosage: 1 DF, BID
  6. HALOPERIDOL [Concomitant]
     Dosage: 2 MG, BID
  7. METHOTRIMEPRAZINE [Concomitant]
     Dosage: 1 DF, QHS
  8. PERINDOPRIL ERBUMINE [Concomitant]
     Dosage: 4 MG, QD
  9. TERAZOSIN HCL [Concomitant]
     Dosage: 5 MG, QD
  10. MORPHINE [Concomitant]
     Dosage: 2 MG, QID
     Route: 058
  11. LORAZEPAM [Concomitant]
     Indication: ANXIETY
     Dosage: 1 MG, QD
  12. CLOZARIL [Suspect]
     Dates: start: 20071126
  13. IPRATROPIUM BROMIDE [Concomitant]
     Dosage: 40 UG, QID
  14. LORAZEPAM [Concomitant]
     Dosage: 1 MG, TID
  15. METFORMIN HCL [Concomitant]
     Dosage: 1 DF, TID
  16. ALBUTEROL [Concomitant]
     Dosage: 200 UG, QID
  17. ACETAMINOPHEN [Concomitant]
     Indication: BODY TEMPERATURE INCREASED
     Dosage: 2 DF
  18. ATROPINE [Concomitant]
     Dosage: 2 DRP, TID
  19. CLOZARIL [Suspect]
     Dosage: 300 MG, QHS
  20. CLOZARIL [Suspect]
     Dosage: 50 MG, QHS
  21. DIMENHYDRINATE [Concomitant]
     Dosage: 50 MG, TID
  22. MORPHINE [Concomitant]
     Indication: PAIN
     Dosage: 3 MG, UNK
     Route: 058

REACTIONS (8)
  - BACK PAIN [None]
  - DEATH [None]
  - CHRONIC OBSTRUCTIVE PULMONARY DISEASE [None]
  - BENIGN PROSTATIC HYPERPLASIA [None]
  - SCHIZOPHRENIA [None]
  - TYPE 2 DIABETES MELLITUS [None]
  - METASTASIS [None]
  - HYPERTENSION [None]
